FAERS Safety Report 6332809-1 (Version None)
Quarter: 2009Q3

REPORT INFORMATION
  Report Type: 
  Country: None (occurrence: None)
  Receive Date: 20090827
  Receipt Date: 20090827
  Transmission Date: 20100115
  Serious: No
  Sender: FDA-Public Use
  Company Number: None

PATIENT

DRUGS (2)
  1. PROTONIX [Suspect]
     Dosage: TABLET
     Route: 048
  2. PAXIL [Suspect]
     Dosage: TABLET
     Route: 048

REACTIONS (5)
  - CHILLS [None]
  - CONSTIPATION [None]
  - DRUG DISPENSING ERROR [None]
  - DRY MOUTH [None]
  - RASH [None]
